FAERS Safety Report 23277491 (Version 1)
Quarter: 2023Q4

REPORT INFORMATION
  Report Type: Spontaneous
  Country: US (occurrence: None)
  Receive Date: 20231207
  Receipt Date: 20231207
  Transmission Date: 20240110
  Serious: Yes (Other)
  Sender: FDA-Public Use
  Company Number: None

PATIENT
  Age: 34 Year
  Sex: Female
  Weight: 85.5 kg

DRUGS (1)
  1. CAPLYTA [Suspect]
     Active Substance: LUMATEPERONE
     Indication: Bipolar II disorder
     Dosage: FREQUENCY : DAILY;?
     Route: 048
     Dates: start: 20231206, end: 20231206

REACTIONS (8)
  - Dizziness [None]
  - Syncope [None]
  - Tachycardia [None]
  - Insomnia [None]
  - Balance disorder [None]
  - Migraine [None]
  - Nausea [None]
  - Therapy cessation [None]

NARRATIVE: CASE EVENT DATE: 20231206
